FAERS Safety Report 10263411 (Version 1)
Quarter: 2014Q2

REPORT INFORMATION
  Report Type: Spontaneous
  Country: FR (occurrence: FR)
  Receive Date: 20140626
  Receipt Date: 20140626
  Transmission Date: 20141212
  Serious: Yes (Death)
  Sender: FDA-Public Use
  Company Number: FR-BAXTER-2014BAX034245

PATIENT
  Age: 21 Year
  Sex: Male

DRUGS (1)
  1. KIOVIG, 100 MG/ML, SOLUTION POUR PERFUSION [Suspect]
     Indication: NEUROLOGICAL DECOMPENSATION
     Dosage: 5 MONTHLY COURSES
     Route: 065

REACTIONS (1)
  - Mechanical ventilation complication [Fatal]
